FAERS Safety Report 6452896-X (Version None)
Quarter: 2009Q4

REPORT INFORMATION
  Report Type: 
  Country: None (occurrence: None)
  Receive Date: 20091124
  Receipt Date: 20081105
  Transmission Date: 20100525
  Serious: No
  Sender: FDA-Public Use
  Company Number: US-ABBOTT-08P-163-0486474-00

PATIENT
  Sex: Male

DRUGS (3)
  1. TRICOR [Suspect]
     Indication: DRUG USE FOR UNKNOWN INDICATION
     Dates: start: 20050101
  2. CLOPIDOGREL [Concomitant]
     Indication: DRUG USE FOR UNKNOWN INDICATION
  3. DIOVAN HCT [Concomitant]
     Indication: DRUG USE FOR UNKNOWN INDICATION
     Dates: start: 20050101

REACTIONS (1)
  - FATIGUE [None]
